FAERS Safety Report 17158928 (Version 1)
Quarter: 2019Q4

REPORT INFORMATION
  Report Type: Spontaneous
  Country: US (occurrence: US)
  Receive Date: 20191216
  Receipt Date: 20191216
  Transmission Date: 20200122
  Serious: No
  Sender: FDA-Public Use
  Company Number: US-TEVA-2019-US-1151295

PATIENT
  Sex: Male

DRUGS (1)
  1. CLOZAPINE TEVA [Suspect]
     Active Substance: CLOZAPINE
     Dosage: DOSE 0.5 MG TABLET
     Route: 065

REACTIONS (4)
  - Neck pain [Unknown]
  - Ill-defined disorder [Unknown]
  - Nausea [Unknown]
  - Headache [Unknown]
